FAERS Safety Report 11910196 (Version 2)
Quarter: 2016Q1

REPORT INFORMATION
  Report Type: Spontaneous
  Country: US (occurrence: US)
  Receive Date: 20160112
  Receipt Date: 20160301
  Transmission Date: 20160526
  Serious: Yes (Hospitalization)
  Sender: FDA-Public Use
  Company Number: US-PFIZER INC-2015473843

PATIENT
  Age: 73 Year
  Sex: Female
  Weight: 57 kg

DRUGS (2)
  1. VFEND [Suspect]
     Active Substance: VORICONAZOLE
     Indication: PROPHYLAXIS
     Dosage: 200 MG, DAILY
     Route: 048
     Dates: start: 201501, end: 20151226
  2. VFEND [Suspect]
     Active Substance: VORICONAZOLE
     Indication: IMMUNE SYSTEM DISORDER

REACTIONS (4)
  - Neutrophil count decreased [Unknown]
  - Pyrexia [Unknown]
  - Product use issue [Unknown]
  - Abdominal pain [Unknown]

NARRATIVE: CASE EVENT DATE: 201501
